FAERS Safety Report 15291549 (Version 8)
Quarter: 2018Q4

REPORT INFORMATION
  Report Type: Report from Study
  Country: US (occurrence: US)
  Receive Date: 20180817
  Receipt Date: 20181119
  Transmission Date: 20190204
  Serious: Yes (Hospitalization)
  Sender: FDA-Public Use
  Company Number: US-ACTELION-A-NJ2018-177513

PATIENT
  Age: 62 Year
  Sex: Female
  Weight: 62.59 kg

DRUGS (5)
  1. TYVASO [Concomitant]
     Active Substance: TREPROSTINIL
  2. AMLODIPINE [Concomitant]
     Active Substance: AMLODIPINE BESYLATE
  3. OPSUMIT [Suspect]
     Active Substance: MACITENTAN
     Indication: PULMONARY HYPERTENSION
     Dosage: 10 MG, QD
     Route: 048
  4. VELETRI [Suspect]
     Active Substance: EPOPROSTENOL
     Indication: PULMONARY HYPERTENSION
     Dosage: 11 NG/KG, PER MIN
     Route: 042
  5. ADCIRCA [Concomitant]
     Active Substance: TADALAFIL

REACTIONS (12)
  - Diarrhoea [Unknown]
  - Weight decreased [Unknown]
  - Insomnia [Unknown]
  - Dizziness [Unknown]
  - Flushing [Unknown]
  - Malaise [Recovering/Resolving]
  - Headache [Recovering/Resolving]
  - Decreased appetite [Unknown]
  - Diagnostic procedure [Unknown]
  - Product administration error [Recovered/Resolved]
  - Dyspnoea [Unknown]
  - Nausea [Unknown]

NARRATIVE: CASE EVENT DATE: 20180808
